FAERS Safety Report 24036968 (Version 1)
Quarter: 2024Q3

REPORT INFORMATION
  Report Type: Spontaneous
  Country: CN (occurrence: None)
  Receive Date: 20240701
  Receipt Date: 20240701
  Transmission Date: 20241016
  Serious: Yes (Other)
  Sender: ASTRAZENECA
  Company Number: 2024A143916

PATIENT
  Age: 27222 Day
  Sex: Female
  Weight: 80 kg

DRUGS (5)
  1. DAPAGLIFLOZIN [Suspect]
     Active Substance: DAPAGLIFLOZIN
     Indication: Blood glucose decreased
     Route: 048
     Dates: start: 20240102, end: 20240531
  2. TRULICITY [Suspect]
     Active Substance: DULAGLUTIDE
     Indication: Blood glucose decreased
     Route: 059
     Dates: start: 20240101, end: 20240531
  3. AMLODIPINE BESYLATE\VALSARTAN [Suspect]
     Active Substance: AMLODIPINE BESYLATE\VALSARTAN
     Indication: Blood glucose decreased
     Route: 048
     Dates: start: 20240101, end: 20240531
  4. ACARBOSE [Suspect]
     Active Substance: ACARBOSE
     Indication: Blood glucose decreased
     Route: 048
     Dates: start: 20240101, end: 20240531
  5. BISOPROLOL FUMARATE [Concomitant]
     Active Substance: BISOPROLOL FUMARATE
     Indication: Blood glucose decreased
     Route: 048
     Dates: start: 20230401, end: 20240531

REACTIONS (3)
  - Transaminases increased [Unknown]
  - Biliary obstruction [Unknown]
  - Hepatic steatosis [Unknown]

NARRATIVE: CASE EVENT DATE: 20240530
